FAERS Safety Report 18090979 (Version 1)
Quarter: 2020Q3

REPORT INFORMATION
  Report Type: Spontaneous
  Country: US (occurrence: US)
  Receive Date: 20200729
  Receipt Date: 20200729
  Transmission Date: 20201103
  Serious: No
  Sender: FDA-Public Use
  Company Number: None

PATIENT
  Age: 63 Year
  Sex: Male
  Weight: 142.43 kg

DRUGS (1)
  1. PREGABALIN 100MG [Suspect]
     Active Substance: PREGABALIN
     Dosage: ?          OTHER DOSE:LYRICA 100MG;?
     Route: 048

REACTIONS (3)
  - Pain [None]
  - Product substitution issue [None]
  - Neuralgia [None]
